FAERS Safety Report 19441077 (Version 1)
Quarter: 2021Q2

REPORT INFORMATION
  Report Type: Spontaneous
  Country: HR (occurrence: HR)
  Receive Date: 20210621
  Receipt Date: 20210621
  Transmission Date: 20210717
  Serious: Yes (Other)
  Sender: FDA-Public Use
  Company Number: HR-TEVA-2021-HR-1923365

PATIENT
  Age: 7 Year
  Sex: Female
  Weight: 25 kg

DRUGS (1)
  1. MELARTH [Suspect]
     Active Substance: MELOXICAM
     Indication: ASTHMA
     Dosage: 5 MILLIGRAM DAILY; 5MG; 1X1 PER PERSON , ADDITIONAL INFO: DISCONTINUATION OF MELARTHOMA THERAPY, PRE
     Route: 048
     Dates: end: 20210419

REACTIONS (7)
  - Screaming [Recovered/Resolved]
  - Crying [Recovered/Resolved]
  - Tic [Recovered/Resolved]
  - Aggression [Recovered/Resolved]
  - Anger [Recovered/Resolved]
  - Stress urinary incontinence [Recovered/Resolved]
  - Intentional self-injury [Recovered/Resolved]

NARRATIVE: CASE EVENT DATE: 202012
